FAERS Safety Report 4885963-2 (Version None)
Quarter: 2006Q1

REPORT INFORMATION
  Report Type: 
  Country: None (occurrence: None)
  Receive Date: 20060118
  Receipt Date: 20060118
  Transmission Date: 20060701
  Serious: Yes (Hospitalization)
  Sender: FDA-Public Use
  Company Number: None

PATIENT
  Age: 50 Year
  Sex: Male
  Weight: 88 kg

DRUGS (6)
  1. ASPIRIN [Suspect]
     Dosage: 100 MG QD PO
     Route: 048
  2. CARVIDILOL [Concomitant]
  3. WARFARIN [Concomitant]
  4. SIMVASTATIN [Concomitant]
  5. ENALAPRIL [Concomitant]
  6. DIGOXIN [Concomitant]

REACTIONS (3)
  - GASTRIC ULCER [None]
  - MELAENA [None]
  - RECTAL HAEMORRHAGE [None]
